FAERS Safety Report 13288276 (Version 1)
Quarter: 2017Q1

REPORT INFORMATION
  Report Type: Spontaneous
  Country: US (occurrence: US)
  Receive Date: 20170302
  Receipt Date: 20170302
  Transmission Date: 20170428
  Serious: Yes (Other)
  Sender: FDA-Public Use
  Company Number: US-MYLANLABS-2017M1012646

PATIENT

DRUGS (16)
  1. WARFARIN [Interacting]
     Active Substance: WARFARIN
     Dosage: 75 MG/WEEK
     Route: 048
  2. RIBAVIRIN. [Interacting]
     Active Substance: RIBAVIRIN
     Indication: HEPATITIS C
     Dosage: FOR 12 WEEKS
     Route: 048
  3. PANTOPRAZOLE [Concomitant]
     Active Substance: PANTOPRAZOLE SODIUM
     Indication: PRODUCT USED FOR UNKNOWN INDICATION
     Dosage: 20 MG DAILY
     Route: 048
  4. PARACETAMOL [Concomitant]
     Active Substance: ACETAMINOPHEN
     Indication: PAIN
     Dosage: AS NEEDED
     Route: 048
  5. WARFARIN [Interacting]
     Active Substance: WARFARIN
     Dosage: 80 MG/WEEK
     Route: 048
  6. LISINOPRIL. [Concomitant]
     Active Substance: LISINOPRIL
     Indication: PRODUCT USED FOR UNKNOWN INDICATION
     Dosage: 2.5 MG DAILY
     Route: 048
  7. NITROGLYCERIN. [Concomitant]
     Active Substance: NITROGLYCERIN
     Indication: CHEST PAIN
     Dosage: 0.4 MG AS DIRECTED
     Route: 060
  8. WARFARIN [Interacting]
     Active Substance: WARFARIN
     Dosage: TOTAL WEEKLY DOSE OF 40 MG
     Route: 048
  9. WARFARIN [Interacting]
     Active Substance: WARFARIN
     Dosage: 90 MG/WEEK
     Route: 048
  10. VIEKIRA PAK [Interacting]
     Active Substance: DASABUVIR\OMBITASVIR\PARITAPREVIR\RITONAVIR
     Indication: HEPATITIS C
     Dosage: FOR 12 WEEKS
     Route: 065
  11. WARFARIN [Suspect]
     Active Substance: WARFARIN
     Indication: PRODUCT USED FOR UNKNOWN INDICATION
     Dosage: TOTAL WEEKLY DOSE OF 40 MG
     Route: 048
     Dates: start: 2009
  12. WARFARIN [Interacting]
     Active Substance: WARFARIN
     Dosage: 47.5 MG/WEEK (INCREASED BY 18.8 %)
     Route: 048
  13. WARFARIN [Interacting]
     Active Substance: WARFARIN
     Dosage: 55 MG/WEEK (INCREASED BY 15.8 %)
     Route: 048
  14. DILTIAZEM. [Concomitant]
     Active Substance: DILTIAZEM
     Indication: PRODUCT USED FOR UNKNOWN INDICATION
     Dosage: 120 MG ONCE DAILY
     Route: 048
  15. WARFARIN [Interacting]
     Active Substance: WARFARIN
     Dosage: 70 MG/WEEK (INCREASED BY 27.3 %)
     Route: 048
  16. VIEKIRA PAK [Interacting]
     Active Substance: DASABUVIR\OMBITASVIR\PARITAPREVIR\RITONAVIR
     Dosage: FOR 12 WEEKS
     Route: 065

REACTIONS (4)
  - Haematuria [Recovered/Resolved]
  - International normalised ratio increased [Recovered/Resolved]
  - Drug interaction [Recovered/Resolved]
  - International normalised ratio decreased [Recovered/Resolved]
